FAERS Safety Report 5674243-3 (Version None)
Quarter: 2008Q1

REPORT INFORMATION
  Report Type: 
  Country: None (occurrence: None)
  Receive Date: 20080320
  Receipt Date: 20080312
  Transmission Date: 20080703
  Serious: Yes (Other)
  Sender: FDA-Public Use
  Company Number: US-BAYER-200816798NA

PATIENT
  Age: 16 Year
  Sex: Female
  Weight: 61 kg

DRUGS (2)
  1. YAZ [Suspect]
     Indication: CONTRACEPTION
     Dates: start: 20070801, end: 20080211
  2. MOTRIN [Concomitant]

REACTIONS (3)
  - DYSPNOEA [None]
  - MEDIASTINAL DISORDER [None]
  - PALPITATIONS [None]
